FAERS Safety Report 8649612 (Version 4)
Quarter: 2012Q4

REPORT INFORMATION
  Report Type: Report from Study
  Country: TR (occurrence: TR)
  Receive Date: 20120705
  Receipt Date: 20121213
  Transmission Date: 20130627
  Serious: Yes (Hospitalization)
  Sender: FDA-Public Use
  Company Number: TR-BRISTOL-MYERS SQUIBB COMPANY-16719395

PATIENT
  Age: 65 Year
  Sex: Male
  Weight: 74 kg

DRUGS (11)
  1. VITAMIN B12 [Concomitant]
     Indication: PROPHYLAXIS
  2. DEXAMETHASONE [Concomitant]
     Indication: PROPHYLAXIS
  3. ANTEPSIN [Concomitant]
     Indication: MUCOSAL INFLAMMATION
     Dates: start: 20120528
  4. ANTEPSIN [Concomitant]
     Indication: OESOPHAGITIS
     Dates: start: 20120528
  5. MYCOSTATIN [Concomitant]
     Indication: MUCOSAL INFLAMMATION
     Dates: start: 20120604, end: 20120611
  6. MYCOSTATIN [Concomitant]
     Indication: OESOPHAGITIS
     Dates: start: 20120604, end: 20120611
  7. NOVALGIN [Concomitant]
     Indication: ODYNOPHAGIA
     Dates: start: 20120604
  8. KYTRIL [Concomitant]
     Indication: VOMITING
     Dates: start: 20120528
  9. CISPLATIN [Suspect]
     Indication: NON-SMALL CELL LUNG CANCER STAGE III
     Dosage: Last dose on 11Jun12
     Route: 042
     Dates: start: 20120521
  10. PEMETREXED DISODIUM [Suspect]
     Indication: NON-SMALL CELL LUNG CANCER STAGE III
     Dosage: Last dose on 11Jun12
     Route: 042
     Dates: start: 20120521
  11. FOLIC ACID [Concomitant]
     Indication: PROPHYLAXIS

REACTIONS (4)
  - Leukopenia [Recovered/Resolved]
  - Lymphopenia [Recovered/Resolved]
  - Oesophagitis [Recovered/Resolved]
  - Weight decreased [Recovering/Resolving]
